FAERS Safety Report 8374333-0 (Version None)
Quarter: 2012Q2

REPORT INFORMATION
  Report Type: 
  Country: None (occurrence: None)
  Receive Date: 20120521
  Receipt Date: 20120516
  Transmission Date: 20120825
  Serious: Yes (Hospitalization)
  Sender: FDA-Public Use
  Company Number: DE-ABBOTT-11P-062-0715330-00

PATIENT
  Sex: Female

DRUGS (7)
  1. HUMIRA [Suspect]
     Dosage: RESTARTED POST PROCEDURE; THEN PAUSED ON 23 APR 2011
     Dates: end: 20110423
  2. HUMIRA [Suspect]
     Dosage: ON AND OFF THERAPY AS R/T INFECTIONS
     Dates: end: 20120101
  3. ARAVA [Concomitant]
     Indication: PRODUCT USED FOR UNKNOWN INDICATION
  4. ESCITALOPRAM [Concomitant]
     Indication: PRODUCT USED FOR UNKNOWN INDICATION
  5. LYRICA [Concomitant]
     Indication: PRODUCT USED FOR UNKNOWN INDICATION
  6. HUMIRA [Suspect]
     Indication: ANKYLOSING SPONDYLITIS
     Dosage: PRIOR TO PRE PLANNED PROCEDURE
     Dates: start: 20101105, end: 20110204
  7. PREDNISOLONE [Concomitant]
     Indication: PRODUCT USED FOR UNKNOWN INDICATION

REACTIONS (7)
  - EAR INFECTION [None]
  - PHARYNGITIS [None]
  - NASAL SEPTUM DEVIATION [None]
  - NASAL POLYPS [None]
  - NASAL INFLAMMATION [None]
  - NASAL POLYPECTOMY [None]
  - SINUSITIS [None]
